FAERS Safety Report 5706283-X (Version None)
Quarter: 2008Q2

REPORT INFORMATION
  Report Type: 
  Country: None (occurrence: None)
  Receive Date: 20080328
  Receipt Date: 20071107
  Transmission Date: 20081010
  Serious: Yes (Other)
  Sender: FDA-Public Use
  Company Number: US-WYE-H01200807

PATIENT
  Age: 59 Year
  Sex: Female
  Weight: 63.56 kg

DRUGS (2)
  1. ALAVERT [Suspect]
     Indication: LACRIMATION INCREASED
     Dosage: 1 TABLET 2X PER 1 DAY, ORAL
     Route: 048
     Dates: start: 20071105, end: 20071106
  2. ALAVERT [Suspect]
     Indication: SINUS DISORDER
     Dosage: 1 TABLET 2X PER 1 DAY, ORAL
     Route: 048
     Dates: start: 20071105, end: 20071106

REACTIONS (2)
  - RASH MACULAR [None]
  - RASH PRURITIC [None]
